FAERS Safety Report 8184355-0 (Version None)
Quarter: 2012Q1

REPORT INFORMATION
  Report Type: 
  Country: None (occurrence: None)
  Receive Date: 20120305
  Receipt Date: 20120221
  Transmission Date: 20120608
  Serious: Yes (Hospitalization, Other)
  Sender: FDA-Public Use
  Company Number: US-ELI_LILLY_AND_COMPANY-US201202006711

PATIENT
  Sex: Female

DRUGS (7)
  1. CYMBALTA [Suspect]
     Dosage: 30 MG, QD
     Dates: start: 20111001, end: 20111001
  2. CYMBALTA [Suspect]
     Dosage: 15 MG, OTHER
  3. CYMBALTA [Suspect]
     Indication: BACK PAIN
     Dosage: 30 MG, QD
     Dates: start: 20080101, end: 20090101
  4. CYMBALTA [Suspect]
     Dosage: 15 MG, QOD
  5. CYMBALTA [Suspect]
     Dosage: 60 MG, QD
     Dates: start: 20090101, end: 20111001
  6. CYMBALTA [Suspect]
     Dosage: 30 MG, QOD
     Dates: start: 20111101, end: 20111101
  7. CYMBALTA [Suspect]
     Dosage: 30 MG, OTHER

REACTIONS (8)
  - NEPHROLITHIASIS [None]
  - PARAESTHESIA [None]
  - WRONG TECHNIQUE IN DRUG USAGE PROCESS [None]
  - DRUG WITHDRAWAL SYNDROME [None]
  - DIZZINESS POSTURAL [None]
  - SEPSIS [None]
  - SURGERY [None]
  - VERTIGO [None]
